FAERS Safety Report 6628776-3 (Version None)
Quarter: 2010Q1

REPORT INFORMATION
  Report Type: 
  Country: None (occurrence: None)
  Receive Date: 20100311
  Receipt Date: 20100301
  Transmission Date: 20100710
  Serious: Yes (Other)
  Sender: FDA-Public Use
  Company Number: BR-PFIZER INC-2010026585

PATIENT
  Age: 36 Year
  Sex: Female
  Weight: 49 kg

DRUGS (2)
  1. VIBRAMICINA [Suspect]
     Indication: CANDIDIASIS
     Dosage: 100 MG, EVERY TWELVE HOURS
     Route: 048
     Dates: start: 20100227
  2. AMPHOTERICIN B/TETRACYCLINE HYDROCHLORIDE [Concomitant]
     Indication: CANDIDIASIS
     Dosage: UNK
     Dates: start: 20100227

REACTIONS (5)
  - DECREASED APPETITE [None]
  - FATIGUE [None]
  - FEELING DRUNK [None]
  - NAUSEA [None]
  - VOMITING [None]
